FAERS Safety Report 15540069 (Version 1)
Quarter: 2018Q4

REPORT INFORMATION
  Report Type: Spontaneous
  Country: HK (occurrence: HK)
  Receive Date: 20181023
  Receipt Date: 20181023
  Transmission Date: 20190205
  Serious: Yes (Death, Other)
  Sender: FDA-Public Use
  Company Number: HK-ROCHE-2198111

PATIENT
  Age: 59 Year
  Sex: Male
  Weight: 45.4 kg

DRUGS (1)
  1. TECENTRIQ [Suspect]
     Active Substance: ATEZOLIZUMAB
     Indication: TRANSITIONAL CELL CANCER OF THE RENAL PELVIS AND URETER
     Route: 065
     Dates: start: 20180920

REACTIONS (4)
  - Asthenia [Unknown]
  - Condition aggravated [Unknown]
  - Death [Fatal]
  - Decreased appetite [Unknown]
